FAERS Safety Report 8764746 (Version 2)
Quarter: 2012Q4

REPORT INFORMATION
  Report Type: 
  Country: JP (occurrence: JP)
  Receive Date: 20120831
  Receipt Date: 20120907
  Transmission Date: 20130627
  Serious: Yes (Hospitalization, Disabling)
  Sender: FDA-Public Use
  Company Number: JP-ROCHE-1108209

PATIENT
  Sex: Male

DRUGS (1)
  1. DORMICUM (UNSPEC) [Suspect]
     Indication: DELIRIUM
     Route: 065

REACTIONS (1)
  - Respiratory depression [Unknown]
